FAERS Safety Report 6427190-3 (Version None)
Quarter: 2009Q4

REPORT INFORMATION
  Report Type: 
  Country: None (occurrence: None)
  Receive Date: 20091030
  Receipt Date: 20091016
  Transmission Date: 20100525
  Serious: Yes (Death, Hospitalization)
  Sender: FDA-Public Use
  Company Number: 2009AC000265

PATIENT
  Age: 90 Year
  Sex: Female

DRUGS (33)
  1. DIGOXIN [Suspect]
     Dosage: .125 MG; QD; PO
     Route: 048
     Dates: end: 20080301
  2. LORCET-HD [Concomitant]
  3. NAPROXEN [Concomitant]
  4. POLYSACCHARIDE [Concomitant]
  5. CYANOCOBALAMIN [Concomitant]
  6. FUROSEMIDE [Concomitant]
  7. KLOR-CON [Concomitant]
  8. METRONIDAZOLE [Concomitant]
  9. LEVAQUIN [Concomitant]
  10. SULAR [Concomitant]
  11. PRILOSEC [Concomitant]
  12. PROMETHAZINE [Concomitant]
  13. HYDROXYZINE [Concomitant]
  14. ASPIRIN [Concomitant]
  15. TRAMADOL HCL [Concomitant]
  16. WARFARIN [Concomitant]
  17. COREG [Concomitant]
  18. ISOSORBIDE [Concomitant]
  19. FULMO-AIDE [Concomitant]
  20. ENALAPRIL [Concomitant]
  21. ALBUTEROL [Concomitant]
  22. TITRAMADOL [Concomitant]
  23. SPIRONOLACTONE [Concomitant]
  24. DILTIAZEM [Concomitant]
  25. AMOXICILLIN [Concomitant]
  26. LOVENOX [Concomitant]
  27. CALCIUM [Concomitant]
  28. ACETAMINOPHEN [Concomitant]
  29. ACYCLOVIR SODIUM [Concomitant]
  30. ZOLPIDEM [Concomitant]
  31. NATRECOR [Concomitant]
  32. SOLU-MEDROL [Concomitant]
  33. MORPHINE [Concomitant]

REACTIONS (15)
  - BRADYCARDIA [None]
  - CARDIAC FAILURE CONGESTIVE [None]
  - CREPITATIONS [None]
  - DEHYDRATION [None]
  - DIZZINESS [None]
  - GASTROINTESTINAL SOUNDS ABNORMAL [None]
  - HEART RATE IRREGULAR [None]
  - HYPERKALAEMIA [None]
  - INJURY [None]
  - LEFT VENTRICULAR DYSFUNCTION [None]
  - OEDEMA [None]
  - PNEUMONIA [None]
  - PROTHROMBIN TIME PROLONGED [None]
  - RESPIRATORY DISTRESS [None]
  - URINARY TRACT INFECTION [None]
